FAERS Safety Report 8028373-1 (Version None)
Quarter: 2012Q1

REPORT INFORMATION
  Report Type: 
  Country: None (occurrence: None)
  Receive Date: 20120106
  Receipt Date: 20120104
  Transmission Date: 20120608
  Serious: Yes (Hospitalization, Other)
  Sender: FDA-Public Use
  Company Number: JP-B.I. PHARMACEUTICALS,INC./RIDGEFIELD-2011-BP-27602NB

PATIENT
  Age: 78 Year
  Sex: Male
  Weight: 65.7 kg

DRUGS (8)
  1. PRADAXA [Suspect]
     Indication: ATRIAL FIBRILLATION
     Dosage: 220 MG
     Route: 048
     Dates: start: 20111031, end: 20111128
  2. ZOPICOOL [Concomitant]
     Route: 065
  3. LASIX [Concomitant]
     Dosage: 20 MG
     Route: 048
  4. HEPARIN SODIUM [Suspect]
     Indication: EXTRACORPOREAL CIRCULATION
     Dosage: 5 ML
     Route: 042
     Dates: start: 20111202, end: 20111202
  5. LOSARTAN POTASSIUM [Concomitant]
     Dosage: 12.5 MG
     Route: 048
  6. HEPARIN SODIUM [Suspect]
     Indication: ANTICOAGULANT THERAPY
  7. BISOPROLOL FUMARATE [Concomitant]
     Dosage: 5 MG
     Route: 048
  8. INDAPAMIDE [Concomitant]
     Dosage: 2 MG
     Route: 048

REACTIONS (3)
  - HAEMORRHAGIC DIATHESIS [None]
  - AORTIC VALVE REPLACEMENT [None]
  - COAGULATION TIME PROLONGED [None]
